FAERS Safety Report 5058527-8 (Version None)
Quarter: 2006Q2

REPORT INFORMATION
  Report Type: 
  Country: None (occurrence: None)
  Receive Date: 20060627
  Receipt Date: 20051216
  Transmission Date: 20061013
  Serious: Yes (Death)
  Sender: FDA-Public Use
  Company Number: 429152

PATIENT
  Age: 57 Year
  Sex: Female

DRUGS (1)
  1. XELODA [Suspect]
     Indication: PANCREATIC CARCINOMA METASTATIC
     Dosage: 2500 MG DAILY ORAL
     Route: 048
     Dates: start: 20051115

REACTIONS (2)
  - NAUSEA [None]
  - PANCREATIC CARCINOMA [None]
